FAERS Safety Report 23584852 (Version 2)
Quarter: 2024Q2

REPORT INFORMATION
  Report Type: Spontaneous
  Country: JP (occurrence: JP)
  Receive Date: 20240301
  Receipt Date: 20240426
  Transmission Date: 20240715
  Serious: Yes (Other)
  Sender: FDA-Public Use
  Company Number: JP-UCBJ-CD202401618UCBPHAPROD

PATIENT
  Age: 7 Decade
  Sex: Male

DRUGS (3)
  1. CERTOLIZUMAB PEGOL [Suspect]
     Active Substance: CERTOLIZUMAB PEGOL
     Indication: Psoriatic arthropathy
     Dosage: UNK (INJECTION)
     Route: 058
  2. ETRETINATE [Concomitant]
     Active Substance: ETRETINATE
     Indication: Psoriasis
     Dosage: UNK
     Route: 048
  3. VITAMIN D NOS [Concomitant]
     Active Substance: VITAMIN D NOS
     Indication: Psoriasis
     Dosage: UNK

REACTIONS (2)
  - Colitis ulcerative [Unknown]
  - Psoriatic arthropathy [Unknown]
